FAERS Safety Report 7364960-1 (Version None)
Quarter: 2011Q1

REPORT INFORMATION
  Report Type: 
  Country: None (occurrence: None)
  Receive Date: 20110321
  Receipt Date: 20110310
  Transmission Date: 20110831
  Serious: Yes (Other)
  Sender: FDA-Public Use
  Company Number: US-ASTRAZENECA-2011SE13828

PATIENT
  Age: 60 Year
  Sex: Male

DRUGS (2)
  1. PROLOSEC [Suspect]
     Route: 048
  2. NEXIUM [Suspect]
     Route: 048

REACTIONS (8)
  - DUODENAL ULCER [None]
  - HIATUS HERNIA [None]
  - BRAIN NEOPLASM MALIGNANT [None]
  - DEEP VEIN THROMBOSIS [None]
  - CONVULSION [None]
  - ADVERSE EVENT [None]
  - NAUSEA [None]
  - HAEMORRHAGE [None]
